FAERS Safety Report 9042701 (Version 1)
Quarter: 2013Q1

REPORT INFORMATION
  Report Type: Report from Study
  Country: US (occurrence: US)
  Receive Date: 20130129
  Receipt Date: 20130129
  Transmission Date: 20140127
  Serious: No
  Sender: FDA-Public Use
  Company Number: US-ABBOTT-12P-163-0908636-00

PATIENT
  Age: 68 Year
  Sex: Male

DRUGS (23)
  1. HUMIRA 40 MG/0.8 ML PEN [Suspect]
     Indication: CROHN^S DISEASE
  2. PENTASA [Concomitant]
     Indication: CROHN^S DISEASE
     Dosage: 250 MG X 6 TABS DAILY
  3. NIASPAN (COATED) 1000MG [Concomitant]
     Indication: PRODUCT USED FOR UNKNOWN INDICATION
  4. OMEPRAZOLE [Concomitant]
     Indication: DYSPEPSIA
  5. SIMVASTATIN [Concomitant]
     Indication: PRODUCT USED FOR UNKNOWN INDICATION
  6. METOPROLOL SUCCINATE ER [Concomitant]
     Indication: HYPERTENSION
  7. PAROXETINE ER [Concomitant]
     Indication: ANXIETY
  8. DIPHENOXYLATE/ATROPINE [Concomitant]
     Indication: DIARRHOEA
     Dosage: 6 TABS DAILY
  9. DIOVAN HCT [Concomitant]
     Indication: HYPERTENSION
     Dosage: 160 MG/12.5 MG X 1 TAB DAILY
  10. BABY ASPIRIN [Concomitant]
     Indication: PRODUCT USED FOR UNKNOWN INDICATION
  11. SEROQUEL [Concomitant]
     Indication: PRODUCT USED FOR UNKNOWN INDICATION
     Dosage: 25 MG X 6 TABS DAILY
  12. VENLAFAXINE [Concomitant]
     Indication: PRODUCT USED FOR UNKNOWN INDICATION
     Dosage: 75 MG X 3 TABS DAILY
  13. FOLIC ACID [Concomitant]
     Indication: PRODUCT USED FOR UNKNOWN INDICATION
  14. NAMENDA [Concomitant]
     Indication: DEMENTIA ALZHEIMER^S TYPE
     Dosage: 10 MG X 2 TABS DAILY
  15. POTASSIUM CITRATE [Concomitant]
     Indication: PRODUCT USED FOR UNKNOWN INDICATION
     Dosage: 10 MEQ X 2 TABS DAILY
  16. CETRIZINE [Concomitant]
     Indication: HYPERSENSITIVITY
  17. RANITIDINE [Concomitant]
     Indication: DYSPEPSIA
     Dosage: AT BEDTIME
  18. MERCAPTOPURINE [Concomitant]
     Indication: CROHN^S DISEASE
     Dosage: 50 MG X 1.5 TABS DAILY
  19. MECLIZINE [Concomitant]
     Indication: VERTIGO
  20. HYDROXYZINE HCL [Concomitant]
     Indication: PRURITUS
     Dosage: EVERY 6 HRS AS REQUIRED
  21. MULTIVITAMIN [Concomitant]
     Indication: PRODUCT USED FOR UNKNOWN INDICATION
     Dosage: DAILY
  22. VITAMIN C [Concomitant]
     Indication: PRODUCT USED FOR UNKNOWN INDICATION
     Dosage: 1000 MG DAILY
  23. VITAMIN B12 [Concomitant]
     Indication: PRODUCT USED FOR UNKNOWN INDICATION

REACTIONS (3)
  - Rash macular [Not Recovered/Not Resolved]
  - Bone disorder [Unknown]
  - Gastrooesophageal reflux disease [Unknown]
